FAERS Safety Report 6482068-4 (Version None)
Quarter: 2009Q4

REPORT INFORMATION
  Report Type: 
  Country: None (occurrence: None)
  Receive Date: 20091208
  Receipt Date: 20090403
  Transmission Date: 20100525
  Serious: No
  Sender: FDA-Public Use
  Company Number: US-AMGEN-KDL341489

PATIENT
  Sex: Female

DRUGS (5)
  1. ENBREL [Suspect]
     Indication: RHEUMATOID ARTHRITIS
     Route: 058
     Dates: start: 20080901
  2. GABAPENTIN [Concomitant]
  3. PREDNISONE [Concomitant]
  4. BENADRYL [Concomitant]
  5. DILTIAZEM [Concomitant]

REACTIONS (4)
  - LOCALISED INFECTION [None]
  - RHEUMATOID ARTHRITIS [None]
  - STOMATITIS [None]
  - THERAPEUTIC RESPONSE DECREASED [None]
